FAERS Safety Report 8339524-3 (Version None)
Quarter: 2012Q2

REPORT INFORMATION
  Report Type: 
  Country: None (occurrence: None)
  Receive Date: 20120507
  Receipt Date: 20120424
  Transmission Date: 20120825
  Serious: Yes (Other)
  Sender: FDA-Public Use
  Company Number: IL-JNJFOC-20120411584

PATIENT
  Sex: Female

DRUGS (2)
  1. REMICADE [Suspect]
     Indication: JUVENILE ARTHRITIS
     Route: 042
  2. PHENERGAN [Concomitant]
     Indication: PREMEDICATION
     Dosage: DOSE: 2 VIALS
     Route: 065

REACTIONS (1)
  - BLOOD PRESSURE SYSTOLIC DECREASED [None]
